FAERS Safety Report 6553744-X (Version None)
Quarter: 2010Q1

REPORT INFORMATION
  Report Type: 
  Country: None (occurrence: None)
  Receive Date: 20100127
  Receipt Date: 20100114
  Transmission Date: 20100710
  Serious: Yes (Hospitalization)
  Sender: FDA-Public Use
  Company Number: PHEH2009US13916

PATIENT
  Sex: Female

DRUGS (11)
  1. EXJADE [Suspect]
     Dosage: 1000 MG DAILY
     Route: 048
  2. CYCLOSPORINE [Interacting]
  3. CELEXA [Interacting]
  4. ZOCOR [Interacting]
  5. TRAZODONE [Interacting]
  6. FOLIC ACID [Interacting]
  7. NIACIN [Interacting]
  8. ACYCLOVIR [Interacting]
  9. LANTUS [Interacting]
     Dosage: UNK, BID
  10. PRILOSEC [Interacting]
  11. VITAMIN TAB [Interacting]

REACTIONS (5)
  - BLOOD GLUCOSE DECREASED [None]
  - DIZZINESS [None]
  - DRUG INTERACTION [None]
  - MALAISE [None]
  - VOMITING [None]
